FAERS Safety Report 8591053-8 (Version None)
Quarter: 2012Q3

REPORT INFORMATION
  Report Type: 
  Country: None (occurrence: None)
  Receive Date: 20120813
  Receipt Date: 20120808
  Transmission Date: 20120928
  Serious: Yes (Hospitalization)
  Sender: FDA-Public Use
  Company Number: JP-CELGENEUS-087-21880-12072547

PATIENT

DRUGS (20)
  1. LANSOPRAZOLE [Concomitant]
     Route: 065
     Dates: start: 20110808
  2. CELESTAMINE TAB [Concomitant]
     Route: 065
     Dates: start: 20120717
  3. TIARAMIDE HYDROCHLORIDE [Concomitant]
     Route: 065
     Dates: start: 20120704, end: 20120706
  4. ELOTUZUMAB [Suspect]
     Indication: MULTIPLE MYELOMA
     Route: 065
  5. ZOLEDRONIC ACID HYDRATE [Concomitant]
     Route: 065
     Dates: start: 20120702, end: 20120702
  6. DEXAMETHASONE ACETATE [Suspect]
     Indication: MULTIPLE MYELOMA
     Route: 065
     Dates: start: 20120612, end: 20120719
  7. ASPIRIN [Concomitant]
     Route: 065
     Dates: start: 20120612, end: 20120719
  8. ALLOPURINOL [Concomitant]
     Route: 065
     Dates: start: 20110813
  9. DAIFEN (SULFAMETHOXAZOLE, TRIMETHOPRIM) [Concomitant]
     Route: 065
     Dates: start: 20110808
  10. REVLIMID [Suspect]
     Route: 048
     Dates: start: 20120724
  11. ASPIRIN [Concomitant]
     Route: 065
     Dates: start: 20120724
  12. INDOMETHACIN [Concomitant]
     Route: 065
     Dates: start: 20111003
  13. BEZAFIBRATE [Concomitant]
     Route: 065
     Dates: start: 20110713
  14. TELMISARTAN [Concomitant]
     Route: 065
     Dates: start: 20110813
  15. DEXAMETHASONE ACETATE [Suspect]
     Dates: start: 20120724
  16. AMLODIPINE BESYLATE [Concomitant]
     Route: 065
     Dates: start: 20110813
  17. REVLIMID [Suspect]
     Indication: MULTIPLE MYELOMA
     Dosage: 10 MILLIGRAM
     Route: 048
     Dates: start: 20120710, end: 20120719
  18. SUCRALFATE [Concomitant]
     Route: 065
     Dates: start: 20120717
  19. ISOSORBIDE DINITRATE [Concomitant]
     Route: 065
     Dates: start: 20110813
  20. ACYCLOVIR [Concomitant]
     Route: 065
     Dates: start: 20110810

REACTIONS (1)
  - HYPONATRAEMIA [None]
